FAERS Safety Report 5868342-0 (Version None)
Quarter: 2008Q3

REPORT INFORMATION
  Report Type: 
  Country: None (occurrence: None)
  Receive Date: 20080903
  Receipt Date: 20080822
  Transmission Date: 20090109
  Serious: Yes (Other)
  Sender: FDA-Public Use
  Company Number: US-JNJFOC-20080805692

PATIENT
  Sex: Male

DRUGS (2)
  1. TYLENOL COLD MULTI-SYMPTOM DAYTIME COOL BURST [Suspect]
     Indication: NASOPHARYNGITIS
     Route: 048
  2. TYLENOL COLD MULTI-SYMPTOM NIGHTTIME COOL BURST [Suspect]
     Indication: NASOPHARYNGITIS
     Route: 048

REACTIONS (1)
  - HAEMATEMESIS [None]
